FAERS Safety Report 18933292 (Version 2)
Quarter: 2021Q1

REPORT INFORMATION
  Report Type: Spontaneous
  Country: US (occurrence: US)
  Receive Date: 20210224
  Receipt Date: 20210304
  Transmission Date: 20210420
  Serious: Yes (Other)
  Sender: FDA-Public Use
  Company Number: US-PFIZER INC-2021169335

PATIENT
  Age: 88 Year
  Sex: Male
  Weight: 106.57 kg

DRUGS (14)
  1. OMEPRAZOLE. [Concomitant]
     Active Substance: OMEPRAZOLE
     Dosage: 40 MG, 1X/DAY
     Route: 048
  2. VITAMIN D3 [Concomitant]
     Active Substance: CHOLECALCIFEROL
     Dosage: 1000 IU, 1X/DAY
     Route: 048
  3. ABATACEPT [Suspect]
     Active Substance: ABATACEPT
     Indication: RHEUMATOID ARTHRITIS
     Dosage: 1000 MG (EVERY 4 WEEKS, STARTED 3 MONTHS PRIOR)
     Route: 042
  4. METHOTREXATE SODIUM. [Suspect]
     Active Substance: METHOTREXATE SODIUM
     Indication: RHEUMATOID ARTHRITIS
     Dosage: 20 MG, WEEKLY (STARTED SEVERAL YEARS PRIOR)
     Route: 048
  5. CALCIUM CARBONATE. [Concomitant]
     Active Substance: CALCIUM CARBONATE
     Dosage: 600 MG, 1X/DAY
     Route: 048
  6. ACETAMINOPHEN. [Concomitant]
     Active Substance: ACETAMINOPHEN
     Dosage: 1000 MG, AS NEEDED (PRN)
     Route: 048
  7. OMEGA 3 [FISH OIL] [Concomitant]
     Active Substance: FISH OIL
     Dosage: 1000 MG, 1X/DAY
     Route: 048
  8. ASCORBIC ACID. [Concomitant]
     Active Substance: ASCORBIC ACID
     Dosage: 1000 MG, DAILY
     Route: 048
  9. ASPIRIN EC [Concomitant]
     Active Substance: ASPIRIN
     Dosage: 81 MG, 1X/DAY
     Route: 048
  10. GLUCOSAMINE CHONDROITIN COMPLEX [ASCORBIC ACID;CHONDROITIN SULFATE SOD [Concomitant]
     Dosage: UNK, 1X/DAY
     Route: 048
  11. VITAMIN E [Concomitant]
     Active Substance: .ALPHA.-TOCOPHEROL
     Dosage: 400 IU, 1X/DAY
     Route: 048
  12. MELOXICAM. [Suspect]
     Active Substance: MELOXICAM
     Indication: RHEUMATOID ARTHRITIS
     Dosage: 15 MG, 1X/DAY  (STARTED SEVERAL YEARS PRIOR)
     Route: 048
  13. DOCUSATE SODIUM. [Concomitant]
     Active Substance: DOCUSATE SODIUM
     Dosage: 100 MG, 1X/DAY
     Route: 048
  14. FOLIC ACID. [Concomitant]
     Active Substance: FOLIC ACID
     Dosage: 1 MG, 1X/DAY
     Route: 048

REACTIONS (3)
  - Pulmonary toxicity [Unknown]
  - Pleural effusion [Unknown]
  - Pulmonary mass [Unknown]
